FAERS Safety Report 8409995-2 (Version None)
Quarter: 2012Q2

REPORT INFORMATION
  Report Type: 
  Country: None (occurrence: None)
  Receive Date: 20120605
  Receipt Date: 20120529
  Transmission Date: 20120825
  Serious: Yes (Hospitalization)
  Sender: FDA-Public Use
  Company Number: US-BAYER-2012-053901

PATIENT
  Age: 41 Year
  Sex: Female

DRUGS (5)
  1. BEYAZ [Suspect]
  2. DROSPIRENONE AND ETHINYL ESTRADIOL [Suspect]
  3. PHENERGAN [Concomitant]
     Indication: NAUSEA
  4. YAZ [Suspect]
     Dosage: UNK
  5. HYDROCODONE [Concomitant]
     Indication: PAIN

REACTIONS (2)
  - CEREBRAL VENOUS THROMBOSIS [None]
  - INTRACRANIAL VENOUS SINUS THROMBOSIS [None]
